FAERS Safety Report 10029242 (Version 1)
Quarter: 2014Q1

REPORT INFORMATION
  Report Type: Spontaneous
  Country: FR (occurrence: FR)
  Receive Date: 20140321
  Receipt Date: 20140321
  Transmission Date: 20141002
  Serious: Yes (Other)
  Sender: FDA-Public Use
  Company Number: PHHY2014FR032482

PATIENT
  Sex: Male

DRUGS (2)
  1. GILENYA [Suspect]
     Route: 048
  2. VALSARTAN [Concomitant]
     Indication: HYPERTENSION

REACTIONS (2)
  - Apnoea [Unknown]
  - Cough [Recovered/Resolved]
